FAERS Safety Report 17587388 (Version 7)
Quarter: 2020Q3

REPORT INFORMATION
  Report Type: Report from Study
  Country: US (occurrence: US)
  Receive Date: 20200326
  Receipt Date: 20200721
  Transmission Date: 20201102
  Serious: Yes (Other)
  Sender: FDA-Public Use
  Company Number: US-DSJP-DSU-2020-109581

PATIENT

DRUGS (4)
  1. ONDANSETRON [Concomitant]
     Active Substance: ONDANSETRON
     Indication: NAUSEA
     Dosage: 8 MG, AS NEEDED
     Route: 048
     Dates: start: 20200303, end: 20200311
  2. PEXIDARTINIB [Suspect]
     Active Substance: PEXIDARTINIB
     Indication: NEOPLASM SKIN
     Dosage: 400 MG, BID
     Route: 048
     Dates: start: 20200223, end: 20200311
  3. PROCHLORPERAZINE. [Concomitant]
     Active Substance: PROCHLORPERAZINE
     Indication: NAUSEA
     Dosage: 10 MG, AS NEEDED
     Route: 048
     Dates: start: 20200311, end: 20200324
  4. HCTZ [Concomitant]
     Active Substance: HYDROCHLOROTHIAZIDE
     Indication: HYPERTENSION
     Dosage: 25 MG, QD
     Route: 048

REACTIONS (13)
  - Nausea [Recovering/Resolving]
  - Bilirubin conjugated increased [Not Recovered/Not Resolved]
  - Blood glucose increased [Unknown]
  - Blood bilirubin increased [Not Recovered/Not Resolved]
  - Monocyte count increased [Unknown]
  - Aspartate aminotransferase increased [Not Recovered/Not Resolved]
  - Decreased appetite [Unknown]
  - Red cell distribution width increased [Unknown]
  - White blood cell count decreased [Unknown]
  - Hepatic function abnormal [Not Recovered/Not Resolved]
  - Alanine aminotransferase increased [Not Recovered/Not Resolved]
  - Constipation [Unknown]
  - Eye colour change [Not Recovered/Not Resolved]

NARRATIVE: CASE EVENT DATE: 20200303
